FAERS Safety Report 23021789 (Version 2)
Quarter: 2023Q4

REPORT INFORMATION
  Report Type: Spontaneous
  Country: US (occurrence: US)
  Receive Date: 20231003
  Receipt Date: 20231102
  Transmission Date: 20240110
  Serious: No
  Sender: FDA-Public Use
  Company Number: US-ABBVIE-5430057

PATIENT
  Sex: Female

DRUGS (1)
  1. ARMOUR THYROID [Suspect]
     Active Substance: THYROID, PORCINE
     Indication: Product used for unknown indication
     Dosage: SEE AED?90 MG
     Route: 048
     Dates: start: 1964

REACTIONS (7)
  - Blood thyroid stimulating hormone increased [Recovered/Resolved]
  - Intentional product misuse [Not Recovered/Not Resolved]
  - Psychomotor hyperactivity [Unknown]
  - Thyroxine decreased [Unknown]
  - Hypophagia [Unknown]
  - Insomnia [Unknown]
  - Tremor [Unknown]
